FAERS Safety Report 6372700-8 (Version None)
Quarter: 2009Q3

REPORT INFORMATION
  Report Type: 
  Country: None (occurrence: None)
  Receive Date: 20090924
  Receipt Date: 20090410
  Transmission Date: 20100115
  Serious: Yes (Other)
  Sender: FDA-Public Use
  Company Number: US-ASTRAZENECA-2008UW27482

PATIENT
  Age: 581 Month
  Sex: Female
  Weight: 83.9 kg

DRUGS (2)
  1. SEROQUEL [Suspect]
     Dosage: 25 - 200 MG
     Route: 048
     Dates: start: 20050601, end: 20080301
  2. RISPERDAL [Concomitant]

REACTIONS (4)
  - ABDOMINAL PAIN UPPER [None]
  - DIABETES MELLITUS [None]
  - PANCREATITIS [None]
  - SUICIDE ATTEMPT [None]
